FAERS Safety Report 7593630-X (Version None)
Quarter: 2011Q2

REPORT INFORMATION
  Report Type: 
  Country: None (occurrence: None)
  Receive Date: 20110628
  Receipt Date: 20110621
  Transmission Date: 20111010
  Serious: Yes (Hospitalization)
  Sender: FDA-Public Use
  Company Number: TCI2011A03687

PATIENT
  Age: 73 Year
  Sex: Male

DRUGS (7)
  1. LANSOPRAZOLE [Suspect]
  2. DOXORUBICIN HYDROCHLORIDE [Concomitant]
  3. CEFAZOLIN SODIUM [Concomitant]
  4. ANTIHYPERTENSIVES [Concomitant]
  5. FLUOROURACIL [Concomitant]
  6. CISPLATIN [Concomitant]
  7. DRUG USED IN DIABETES [Concomitant]

REACTIONS (7)
  - SEPTIC SHOCK [None]
  - AEROMONA INFECTION [None]
  - GASTROINTESTINAL NECROSIS [None]
  - SKIN GRAFT [None]
  - POSTOPERATIVE WOUND INFECTION [None]
  - CIRCULATORY COLLAPSE [None]
  - RESPIRATORY DISORDER [None]
